FAERS Safety Report 18430428 (Version 2)
Quarter: 2020Q4

REPORT INFORMATION
  Report Type: Spontaneous
  Country: US (occurrence: US)
  Receive Date: 20201027
  Receipt Date: 20201210
  Transmission Date: 20210114
  Serious: Yes (Hospitalization, Other)
  Sender: FDA-Public Use
  Company Number: US-INSMED, INC.-US-INS-20-01962

PATIENT
  Sex: Female

DRUGS (1)
  1. ARIKAYCE [Suspect]
     Active Substance: AMIKACIN
     Indication: MYCOBACTERIAL INFECTION
     Route: 055
     Dates: start: 202008, end: 20201119

REACTIONS (4)
  - Decreased appetite [Unknown]
  - Asthenia [Unknown]
  - Hospitalisation [Unknown]
  - Bedridden [Unknown]

NARRATIVE: CASE EVENT DATE: 2020
